FAERS Safety Report 18910219 (Version 2)
Quarter: 2021Q2

REPORT INFORMATION
  Report Type: Spontaneous
  Country: None (occurrence: US)
  Receive Date: 20210218
  Receipt Date: 20210517
  Transmission Date: 20210717
  Serious: Yes (Other)
  Sender: FDA-Public Use
  Company Number: US-GLAXOSMITHKLINE-US2021GSK045489

PATIENT
  Sex: Male

DRUGS (18)
  1. ZANTAC [Suspect]
     Active Substance: RANITIDINE HYDROCHLORIDE
     Indication: EROSIVE OESOPHAGITIS
     Dosage: 75 MG BOTH
     Route: 065
     Dates: start: 201306, end: 201912
  2. RANITIDINE. [Suspect]
     Active Substance: RANITIDINE
     Indication: EROSIVE OESOPHAGITIS
     Dosage: UNKNOWN AT THIS TIME BOTH
     Route: 065
     Dates: start: 201506, end: 201912
  3. RANITIDINE. [Suspect]
     Active Substance: RANITIDINE
     Indication: GASTRIC ULCER
     Dosage: UNK
  4. RANITIDINE CAPSULE [Suspect]
     Active Substance: RANITIDINE
     Indication: GASTRIC ULCER
     Dosage: 75 MG BOTH
     Route: 065
     Dates: start: 201306, end: 201912
  5. RANITIDINE CAPSULE [Suspect]
     Active Substance: RANITIDINE
     Indication: LUNG DISORDER
     Dosage: 150 MG, QD
     Route: 065
     Dates: start: 201506, end: 201912
  6. ZANTAC [Suspect]
     Active Substance: RANITIDINE HYDROCHLORIDE
     Indication: EROSIVE OESOPHAGITIS
     Dosage: 75 MG BOTH
     Route: 065
     Dates: start: 201306, end: 201912
  7. ZANTAC [Suspect]
     Active Substance: RANITIDINE HYDROCHLORIDE
     Indication: LUNG DISORDER
     Dosage: 150 MG, QD
     Route: 065
     Dates: start: 201306, end: 201912
  8. RANITIDINE CAPSULE [Suspect]
     Active Substance: RANITIDINE
     Indication: EROSIVE OESOPHAGITIS
     Dosage: 75 MG OVER THE COUNTER
     Route: 065
     Dates: start: 2013, end: 2019
  9. RANITIDINE. [Suspect]
     Active Substance: RANITIDINE
     Indication: LUNG DISORDER
  10. ZANTAC [Suspect]
     Active Substance: RANITIDINE HYDROCHLORIDE
     Indication: GASTRIC ULCER
     Dosage: 75 MG BOTH
     Route: 065
     Dates: start: 201306, end: 201912
  11. RANITIDINE. [Suspect]
     Active Substance: RANITIDINE
     Indication: EROSIVE OESOPHAGITIS
     Dosage: UNKNOWN AT THIS TIME BOTH
     Route: 065
     Dates: start: 201506, end: 201912
  12. RANITIDINE. [Suspect]
     Active Substance: RANITIDINE
     Indication: GASTRIC ULCER
     Dosage: UNK
  13. RANITIDINE. [Suspect]
     Active Substance: RANITIDINE
     Indication: EROSIVE OESOPHAGITIS
     Dosage: UNKNOWN AT THIS TIME BOTH
     Route: 065
     Dates: start: 201506, end: 201912
  14. ZANTAC [Suspect]
     Active Substance: RANITIDINE HYDROCHLORIDE
     Indication: EROSIVE OESOPHAGITIS
     Dosage: 75 MG OVER THE COUNTER
     Route: 065
     Dates: start: 2013, end: 2019
  15. RANITIDINE. [Suspect]
     Active Substance: RANITIDINE
     Indication: LUNG DISORDER
  16. ZANTAC [Suspect]
     Active Substance: RANITIDINE HYDROCHLORIDE
     Indication: GASTRIC ULCER
     Dosage: 150 MG, QD
     Route: 065
     Dates: start: 201306, end: 201912
  17. RANITIDINE. [Suspect]
     Active Substance: RANITIDINE
     Indication: GASTRIC ULCER
     Dosage: UNK
  18. ZANTAC [Suspect]
     Active Substance: RANITIDINE HYDROCHLORIDE
     Indication: GASTRIC ULCER
     Dosage: 150 MG, QD
     Route: 065
     Dates: start: 201306, end: 201912

REACTIONS (3)
  - Oesophageal carcinoma [Unknown]
  - Lung neoplasm malignant [Unknown]
  - Gastric cancer [Unknown]
